FAERS Safety Report 10808466 (Version 1)
Quarter: 2015Q1

REPORT INFORMATION
  Report Type: Report from Study
  Country: US (occurrence: US)
  Receive Date: 20150217
  Receipt Date: 20150217
  Transmission Date: 20150721
  Serious: No
  Sender: FDA-Public Use
  Company Number: US-ABBVIE-14K-163-1252644-00

PATIENT
  Age: 54 Year
  Sex: Female

DRUGS (2)
  1. HUMIRA [Suspect]
     Active Substance: ADALIMUMAB
  2. HUMIRA [Suspect]
     Active Substance: ADALIMUMAB
     Indication: CROHN^S DISEASE
     Dates: start: 20130513

REACTIONS (9)
  - Gait disturbance [Unknown]
  - Feeling abnormal [Unknown]
  - Back pain [Unknown]
  - Anal fistula [Recovering/Resolving]
  - Insomnia [Unknown]
  - Flank pain [Unknown]
  - Pain [Unknown]
  - Pain in extremity [Unknown]
  - Abdominal pain lower [Unknown]

NARRATIVE: CASE EVENT DATE: 201405
